FAERS Safety Report 8553965-0 (Version None)
Quarter: 2012Q3

REPORT INFORMATION
  Report Type: 
  Country: None (occurrence: None)
  Receive Date: 20120731
  Receipt Date: 20120727
  Transmission Date: 20120928
  Serious: No
  Sender: FDA-Public Use
  Company Number: JP-PFIZER INC-2012177905

PATIENT
  Age: 90 Year
  Sex: Female

DRUGS (5)
  1. DIGOXIN [Concomitant]
     Indication: CARDIAC FAILURE
     Dosage: UNK
     Route: 048
  2. LASIX [Concomitant]
     Indication: OEDEMA PERIPHERAL
     Dosage: UNK
     Route: 048
     Dates: start: 20120721
  3. LYRICA [Suspect]
     Indication: NEURALGIA
     Dosage: UNK
     Route: 048
     Dates: start: 20120416, end: 20120722
  4. VITAMIN B12 [Concomitant]
     Dosage: UNK
  5. LOXONIN [Suspect]
     Indication: PAIN
     Dosage: UNK DF, UNK
     Route: 048
     Dates: start: 20120416, end: 20120722

REACTIONS (1)
  - OEDEMA [None]
